FAERS Safety Report 5015004-8 (Version None)
Quarter: 2006Q2

REPORT INFORMATION
  Report Type: 
  Country: None (occurrence: None)
  Receive Date: 20060530
  Receipt Date: 20060516
  Transmission Date: 20061013
  Serious: Yes (Death)
  Sender: FDA-Public Use
  Company Number: CERD-10013

PATIENT
  Age: 73 Year
  Sex: Male

DRUGS (1)
  1. CEREDASE [Suspect]
     Indication: GAUCHER'S DISEASE
     Dosage: 5800 UNITS Q4WKS IV
     Route: 042
     Dates: start: 20041201, end: 20060301

REACTIONS (2)
  - BONE MARROW TRANSPLANT [None]
  - MULTIPLE MYELOMA [None]
